FAERS Safety Report 7812416-1 (Version None)
Quarter: 2011Q4

REPORT INFORMATION
  Report Type: 
  Country: None (occurrence: None)
  Receive Date: 20111013
  Receipt Date: 20111001
  Transmission Date: 20120403
  Serious: Yes (Hospitalization)
  Sender: FDA-Public Use
  Company Number: US-BAYER-200933102NA

PATIENT
  Age: 26 Year
  Sex: Female
  Weight: 64.545 kg

DRUGS (12)
  1. ASCORBIC ACID [Concomitant]
  2. YASMIN [Suspect]
     Indication: ACNE
     Dosage: PHARMACY RECORDS: 16 SEP 05, 17 OCT 05, 31 OCT 05, 30 NOV 05, 06 FEB 06, 01 MAR 06, 03 APR 06
     Route: 048
     Dates: start: 20041001, end: 20070901
  3. POLYETHYLENE GLYCOL [Concomitant]
     Dates: start: 20060401, end: 20061001
  4. IBUPROFEN [Concomitant]
  5. SULFAMETHOXAZOLE AND TRIMETHOPRIM [Concomitant]
     Dates: start: 20051021
  6. ETHINYL ESTRADIOL W/NORGESTREL [Concomitant]
     Dosage: UNK UNK, QD
     Dates: start: 20070916, end: 20070919
  7. YASMIN [Suspect]
     Indication: CONTRACEPTION
  8. LEVONORGESTREL + ETHINYL ESTRADIOL [Concomitant]
     Dates: start: 20070916, end: 20070919
  9. NITROFURANTOIN [Concomitant]
     Dates: start: 20060401, end: 20070201
  10. MUPIROCIN [Concomitant]
     Dates: start: 20051021
  11. IBUPROFEN (ADVIL) [Concomitant]
  12. EFFEXOR [Concomitant]
     Dates: start: 20050701, end: 20060201

REACTIONS (7)
  - DYSPNOEA EXERTIONAL [None]
  - PULMONARY EMBOLISM [None]
  - MUSCULOSKELETAL PAIN [None]
  - ANXIETY [None]
  - CHEST PAIN [None]
  - COUGH [None]
  - DEPRESSION [None]
